FAERS Safety Report 12338980 (Version 1)
Quarter: 2016Q2

REPORT INFORMATION
  Report Type: Spontaneous
  Country: US (occurrence: US)
  Receive Date: 20160505
  Receipt Date: 20160505
  Transmission Date: 20160815
  Serious: No
  Sender: FDA-Public Use
  Company Number: US-PFIZER INC-2016197204

PATIENT
  Sex: Female

DRUGS (1)
  1. ADVIL [Suspect]
     Active Substance: IBUPROFEN
     Indication: CONCUSSION
     Dosage: UNKNOWN

REACTIONS (3)
  - Contraindicated drug administered [Unknown]
  - Intentional product misuse [Unknown]
  - Abdominal pain upper [Unknown]
